FAERS Safety Report 9264877 (Version 1)
Quarter: 2013Q2

REPORT INFORMATION
  Report Type: Spontaneous
  Country: US (occurrence: None)
  Receive Date: 20130430
  Receipt Date: 20130430
  Transmission Date: 20140414
  Serious: Yes (Other)
  Sender: FDA-Public Use
  Company Number: None

PATIENT
  Age: 45 Year
  Sex: Male
  Weight: 90.72 kg

DRUGS (1)
  1. SERTRALINE HCL [Suspect]
     Dosage: 600MG  DAILY PO
     Route: 048

REACTIONS (3)
  - Abdominal pain upper [None]
  - Drug effect decreased [None]
  - Product substitution issue [None]
